FAERS Safety Report 6469443-9 (Version None)
Quarter: 2009Q4

REPORT INFORMATION
  Report Type: 
  Country: None (occurrence: None)
  Receive Date: 20091203
  Receipt Date: 20091124
  Transmission Date: 20100525
  Serious: Yes (Death, Hospitalization, Other)
  Sender: FDA-Public Use
  Company Number: CA-AMGEN-QUU373696

PATIENT
  Sex: Male

DRUGS (4)
  1. ENBREL [Suspect]
     Indication: RHEUMATOID ARTHRITIS
     Route: 058
     Dates: start: 20030106, end: 20091101
  2. METHOTREXATE [Suspect]
     Dates: start: 20021101, end: 20091101
  3. PLAQUENIL [Concomitant]
     Dates: start: 20011101
  4. FOLIC ACID [Concomitant]
     Dates: start: 20011101

REACTIONS (7)
  - DISSEMINATED INTRAVASCULAR COAGULATION [None]
  - ELECTROMECHANICAL DISSOCIATION [None]
  - H1N1 INFLUENZA [None]
  - HERPES SIMPLEX SEROLOGY POSITIVE [None]
  - INTERSTITIAL LUNG DISEASE [None]
  - MULTI-ORGAN FAILURE [None]
  - PANCYTOPENIA [None]
